FAERS Safety Report 8943080 (Version 1)
Quarter: 2012Q4

REPORT INFORMATION
  Report Type: 
  Country: US (occurrence: US)
  Receive Date: 20121204
  Receipt Date: 20121204
  Transmission Date: 20130627
  Serious: Yes (Hospitalization)
  Sender: FDA-Public Use
  Company Number: US-AMGEN-USASP2012076777

PATIENT
  Age: 72 Year
  Sex: Female

DRUGS (2)
  1. ENBREL [Suspect]
     Indication: RHEUMATOID ARTHRITIS
     Dosage: 25 mg, 2 times/wk
     Dates: start: 20010801
  2. FOSAMAX [Concomitant]
     Dosage: UNK

REACTIONS (3)
  - Osteoporosis [Recovered/Resolved]
  - Stress fracture [Recovered/Resolved]
  - Impaired healing [Recovered/Resolved]
